FAERS Safety Report 8792136 (Version 1)
Quarter: 2012Q4

REPORT INFORMATION
  Report Type: 
  Country: IT (occurrence: IT)
  Receive Date: 20120918
  Receipt Date: 20120918
  Transmission Date: 20130627
  Serious: Yes (Hospitalization)
  Sender: FDA-Public Use
  Company Number: IT-NOVOPROD-359529

PATIENT
  Age: 58 Year
  Sex: Male

DRUGS (2)
  1. VICTOZA [Suspect]
     Indication: PRODUCT USED FOR UNKNOWN INDICATION
     Route: 065
     Dates: start: 20110922
  2. GLUCOPHAGE [Concomitant]
     Dosage: 3000 mg, qd
     Dates: start: 20090101

REACTIONS (2)
  - Retinal detachment [Recovered/Resolved]
  - Glaucoma [Recovered/Resolved]
